FAERS Safety Report 6532563-4 (Version None)
Quarter: 2010Q1

REPORT INFORMATION
  Report Type: 
  Country: None (occurrence: None)
  Receive Date: 20100111
  Receipt Date: 20100105
  Transmission Date: 20100710
  Serious: Yes (Death)
  Sender: FDA-Public Use
  Company Number: NL-SANOFI-AVENTIS-2010SA000507

PATIENT
  Age: 65 Year
  Sex: Female
  Weight: 90 kg

DRUGS (12)
  1. LANTUS [Suspect]
     Indication: TYPE 2 DIABETES MELLITUS
     Dates: start: 20080109, end: 20091001
  2. FUROSEMIDE [Concomitant]
     Dates: end: 20091001
  3. OMEPRAZOLE [Concomitant]
     Dates: end: 20091001
  4. CRESTOR [Concomitant]
     Dates: end: 20091001
  5. VALSARTAN [Concomitant]
     Dates: end: 20091001
  6. METFORMIN HYDROCHLORIDE [Concomitant]
     Dates: end: 20091001
  7. ACETYLSALICYLZUUR [Concomitant]
     Dates: end: 20091001
  8. MONO-CEDOCARD [Concomitant]
     Dates: end: 20091001
  9. METOPROLOL [Concomitant]
     Dates: end: 20091001
  10. FLIXOTIDE DISKUS [Concomitant]
     Dates: end: 20091001
  11. VENTOLIN DISKUS [Concomitant]
     Dates: end: 20091001
  12. ESTRADIOL [Concomitant]
     Route: 062
     Dates: end: 20091001

REACTIONS (1)
  - GASTROINTESTINAL CARCINOMA [None]
